FAERS Safety Report 14404276 (Version 1)
Quarter: 2018Q1

REPORT INFORMATION
  Report Type: Report from Study
  Country: None (occurrence: US)
  Receive Date: 20180117
  Receipt Date: 20180117
  Transmission Date: 20180509
  Serious: Yes (Hospitalization, Other)
  Sender: FDA-Public Use
  Company Number: US-ABBVIE-15P-163-1352472-00

PATIENT
  Age: 71 Year
  Sex: Male
  Weight: 78.6 kg

DRUGS (12)
  1. ACYCLOVIR. [Concomitant]
     Active Substance: ACYCLOVIR
     Indication: INFECTION PROPHYLAXIS
     Route: 048
     Dates: start: 20120618
  2. PRAMIPEXOLE. [Concomitant]
     Active Substance: PRAMIPEXOLE
     Indication: RESTLESS LEGS SYNDROME
     Route: 048
     Dates: start: 20141228
  3. ALLOPURINOL. [Concomitant]
     Active Substance: ALLOPURINOL
     Indication: TUMOUR LYSIS SYNDROME
     Route: 048
     Dates: start: 20150206
  4. ALLOPURINOL. [Concomitant]
     Active Substance: ALLOPURINOL
     Indication: PROPHYLAXIS
  5. NORMAL SALINE (0.9% SODIUM CHLORIDE) [Concomitant]
     Indication: PROPHYLAXIS
  6. CO-TRIMOXAZOLE DS [Concomitant]
     Indication: INFECTION PROPHYLAXIS
     Dosage: 160-800 MG (MILLIGRAM(S)), M, W, F
     Route: 048
     Dates: start: 20120618
  7. ABT-199 [Suspect]
     Active Substance: VENETOCLAX
     Route: 048
     Dates: start: 20150226
  8. NORMAL SALINE (0.9% SODIUM CHLORIDE) [Concomitant]
     Indication: FLUID REPLACEMENT
  9. ADVAIR DISKUS [Concomitant]
     Active Substance: FLUTICASONE PROPIONATE\SALMETEROL XINAFOATE
     Indication: ASTHMA
     Dosage: 250-50 MCG (MICROGRAMS(S))
     Route: 055
     Dates: start: 20141023
  10. ABT-199 [Suspect]
     Active Substance: VENETOCLAX
     Indication: CHRONIC LYMPHOCYTIC LEUKAEMIA
     Route: 048
     Dates: start: 20150224, end: 20150224
  11. NORMAL SALINE (0.9% SODIUM CHLORIDE) [Concomitant]
     Indication: TUMOUR LYSIS SYNDROME
     Route: 042
     Dates: start: 20150224, end: 20150224
  12. FLUTICASONE. [Concomitant]
     Active Substance: FLUTICASONE
     Indication: ASTHMA
     Route: 055
     Dates: start: 20141130, end: 20150215

REACTIONS (2)
  - Blood potassium increased [Recovered/Resolved]
  - Blood creatinine increased [Recovered/Resolved]

NARRATIVE: CASE EVENT DATE: 20150224
